FAERS Safety Report 6964819-5 (Version None)
Quarter: 2010Q3

REPORT INFORMATION
  Report Type: 
  Country: None (occurrence: None)
  Receive Date: 20100903
  Receipt Date: 20100827
  Transmission Date: 20110219
  Serious: Yes (Other)
  Sender: FDA-Public Use
  Company Number: US-ASTRAZENECA-2008UW01189

PATIENT
  Age: 13768 Day
  Sex: Female
  Weight: 101.2 kg

DRUGS (16)
  1. SEROQUEL [Suspect]
     Indication: DEPRESSION
     Dosage: 200 MG AM AND 400 MG HS, 100 MG BID, 100 MG AM 300 MG HS, 25 MG
     Route: 048
     Dates: start: 19991127
  2. SEROQUEL [Suspect]
     Indication: BIPOLAR DISORDER
     Dosage: 200 MG AM AND 400 MG HS, 100 MG BID, 100 MG AM 300 MG HS, 25 MG
     Route: 048
     Dates: start: 19991127
  3. SEROQUEL [Suspect]
     Indication: PARANOIA
     Dosage: 200 MG AM AND 400 MG HS, 100 MG BID, 100 MG AM 300 MG HS, 25 MG
     Route: 048
     Dates: start: 19991127
  4. SEROQUEL [Suspect]
     Indication: INSOMNIA
     Dosage: 200 MG AM AND 400 MG HS, 100 MG BID, 100 MG AM 300 MG HS, 25 MG
     Route: 048
     Dates: start: 19991127
  5. SEROQUEL [Suspect]
     Dosage: 200-600 MG
     Route: 048
     Dates: start: 20000101, end: 20060101
  6. SEROQUEL [Suspect]
     Dosage: 200-600 MG
     Route: 048
     Dates: start: 20000101, end: 20060101
  7. SEROQUEL [Suspect]
     Dosage: 200-600 MG
     Route: 048
     Dates: start: 20000101, end: 20060101
  8. SEROQUEL [Suspect]
     Dosage: 200-600 MG
     Route: 048
     Dates: start: 20000101, end: 20060101
  9. TENEX [Concomitant]
     Route: 065
     Dates: start: 19991127
  10. PAXIL [Concomitant]
     Indication: PANIC ATTACK
     Dosage: 20 MG AM, 30 MG AM
     Route: 065
     Dates: start: 19990415
  11. ZOLOFT [Concomitant]
     Indication: DEPRESSION
     Dosage: 50 MG, 100 MG Q.D
     Route: 065
     Dates: start: 20001024, end: 20050120
  12. ZOLOFT [Concomitant]
     Dates: start: 20010101, end: 20050101
  13. SERZONE [Concomitant]
     Dosage: 100 MG HS, 200 MG HS, 300 MG HS
     Route: 065
     Dates: start: 20010419
  14. ACTOS [Concomitant]
     Route: 065
     Dates: start: 20021211
  15. DARVOCET-N 100 [Concomitant]
     Route: 048
     Dates: start: 20010303
  16. NAPROSYN [Concomitant]
     Route: 065
     Dates: start: 20040917

REACTIONS (12)
  - ADVERSE DRUG REACTION [None]
  - BLOOD CHOLESTEROL INCREASED [None]
  - BLOOD TRIGLYCERIDES INCREASED [None]
  - DIABETES MELLITUS [None]
  - DIABETES MELLITUS INADEQUATE CONTROL [None]
  - DIABETIC COMPLICATION [None]
  - DIABETIC KETOACIDOSIS [None]
  - DIABETIC NEUROPATHY [None]
  - HYPERLIPIDAEMIA [None]
  - OBESITY [None]
  - RENAL DISORDER [None]
  - TYPE 2 DIABETES MELLITUS [None]
